FAERS Safety Report 7502774-X (Version None)
Quarter: 2011Q2

REPORT INFORMATION
  Report Type: 
  Country: None (occurrence: None)
  Receive Date: 20110524
  Receipt Date: 20110524
  Transmission Date: 20111010
  Serious: Yes (Hospitalization)
  Sender: FDA-Public Use
  Company Number: None

PATIENT
  Sex: Female
  Weight: 103.4 kg

DRUGS (5)
  1. CYCLOPHOSPHAMIDE [Suspect]
     Dosage: 1800 MG
  2. PREDNISONE [Suspect]
     Dosage: 1200 MG
  3. DOXORUBICIN HYDROCHLORIDE [Suspect]
     Dosage: 96 MG
  4. ETOPOSIDE [Suspect]
     Dosage: 480 MG
  5. VINCRISTINE SULFATE [Suspect]
     Dosage: 3.2 MG

REACTIONS (1)
  - KLEBSIELLA INFECTION [None]
